FAERS Safety Report 4650651-4 (Version None)
Quarter: 2005Q2

REPORT INFORMATION
  Report Type: 
  Country: None (occurrence: None)
  Receive Date: 20050429
  Receipt Date: 20050429
  Transmission Date: 20051028
  Serious: Yes (Other)
  Sender: FDA-Public Use
  Company Number: None

PATIENT
  Sex: Male
  Weight: 14.8 kg

DRUGS (1)
  1. VALPROIC ACID SYRUP [Suspect]
     Indication: CONVULSION
     Dosage: 4.5 ML  BID  PO
     Route: 048

REACTIONS (2)
  - AGGRESSION [None]
  - DRUG INEFFECTIVE [None]
